FAERS Safety Report 5127100-5 (Version None)
Quarter: 2006Q4

REPORT INFORMATION
  Report Type: 
  Country: None (occurrence: None)
  Receive Date: 20061013
  Receipt Date: 20060710
  Transmission Date: 20070319
  Serious: Yes (Hospitalization)
  Sender: FDA-Public Use
  Company Number: US-BRISTOL-MYERS SQUIBB COMPANY-13539655

PATIENT
  Age: 100 Year
  Sex: Female

DRUGS (11)
  1. KENALOG-40 [Suspect]
     Indication: MACULAR DEGENERATION
     Dosage: THE INJECTION WAS INTRAVITREAL.
     Route: 047
     Dates: start: 20060502, end: 20060502
  2. ALTACE [Concomitant]
  3. ACTONEL [Concomitant]
  4. ATENOLOL [Concomitant]
  5. SLOW FE [Concomitant]
     Dates: start: 20060424
  6. TYLENOL [Concomitant]
     Dates: start: 20060424
  7. ACIDOPHILUS [Concomitant]
     Dates: start: 20060424
  8. MUCINEX [Concomitant]
     Dates: start: 20060424
  9. SALINEX [Concomitant]
  10. TUMS [Concomitant]
     Dates: start: 20060424
  11. AFRIN [Concomitant]
     Dates: start: 20060424

REACTIONS (1)
  - ENDOPHTHALMITIS [None]
